FAERS Safety Report 8498980-0 (Version None)
Quarter: 2012Q3

REPORT INFORMATION
  Report Type: 
  Country: None (occurrence: None)
  Receive Date: 20120710
  Receipt Date: 20120629
  Transmission Date: 20120928
  Serious: No
  Sender: FDA-Public Use
  Company Number: US-BIOGENIDEC-2012BI023578

PATIENT
  Age: 61 Year
  Sex: Female

DRUGS (2)
  1. TYSABRI [Suspect]
     Indication: MULTIPLE SCLEROSIS
     Route: 042
     Dates: start: 20090825, end: 20100209
  2. TYSABRI [Suspect]
     Route: 042
     Dates: start: 20120301, end: 20120531

REACTIONS (4)
  - URTICARIA [None]
  - DYSPNOEA [None]
  - CHEST DISCOMFORT [None]
  - ARTHRALGIA [None]
